FAERS Safety Report 26161021 (Version 1)
Quarter: 2025Q4

REPORT INFORMATION
  Report Type: Spontaneous
  Country: US (occurrence: US)
  Receive Date: 20251216
  Receipt Date: 20251216
  Transmission Date: 20260118
  Serious: Yes (Life-Threatening, Hospitalization, Other)
  Sender: LUPIN
  Company Number: US-MLMSERVICE-20251126-PI727641-00275-1

PATIENT
  Age: 50 Year
  Sex: Male

DRUGS (6)
  1. QUETIAPINE [Suspect]
     Active Substance: QUETIAPINE
     Indication: Schizophrenia
     Route: 065
  2. QUETIAPINE [Suspect]
     Active Substance: QUETIAPINE
     Indication: Bipolar disorder
  3. TRAZODONE [Suspect]
     Active Substance: TRAZODONE HYDROCHLORIDE
     Indication: Schizophrenia
     Dosage: UNK
     Route: 065
  4. TRAZODONE [Suspect]
     Active Substance: TRAZODONE HYDROCHLORIDE
     Indication: Bipolar disorder
  5. CLONAZEPAM [Concomitant]
     Active Substance: CLONAZEPAM
     Indication: Schizophrenia
     Dosage: UNK
     Route: 065
  6. CLONAZEPAM [Concomitant]
     Active Substance: CLONAZEPAM
     Indication: Bipolar disorder

REACTIONS (14)
  - Cardiac arrest [Recovering/Resolving]
  - Bradycardia [Recovering/Resolving]
  - Metabolic acidosis [Unknown]
  - Myocardial ischaemia [Unknown]
  - Brain injury [Unknown]
  - Cytotoxic oedema [Unknown]
  - Ventricular tachycardia [Recovered/Resolved]
  - Atrial fibrillation [Recovered/Resolved]
  - Electrocardiogram QRS complex prolonged [Recovering/Resolving]
  - Electrocardiogram QT prolonged [Recovering/Resolving]
  - Blood creatinine increased [Unknown]
  - Toxicity to various agents [Recovering/Resolving]
  - Intentional overdose [Unknown]
  - Hypokalaemia [Unknown]
